FAERS Safety Report 20805950 (Version 1)
Quarter: 2022Q2

REPORT INFORMATION
  Report Type: Spontaneous
  Country: US (occurrence: US)
  Receive Date: 20220510
  Receipt Date: 20220510
  Transmission Date: 20220721
  Serious: No
  Sender: FDA-Public Use
  Company Number: US-ALLERGAN-2212425US

PATIENT
  Age: 49 Year

DRUGS (1)
  1. VUITY [Suspect]
     Active Substance: PILOCARPINE HYDROCHLORIDE
     Indication: Presbyopia
     Dosage: 4 GTT, QD
     Route: 047

REACTIONS (2)
  - Inappropriate schedule of product administration [Unknown]
  - Therapeutic response shortened [Unknown]
